FAERS Safety Report 12413038 (Version 1)
Quarter: 2016Q2

REPORT INFORMATION
  Report Type: Report from Study
  Country: US (occurrence: US)
  Receive Date: 20160527
  Receipt Date: 20160527
  Transmission Date: 20160815
  Serious: Yes (Death, Hospitalization)
  Sender: FDA-Public Use
  Company Number: US-UCBSA-2016019494

PATIENT
  Age: 70 Year
  Sex: Male

DRUGS (1)
  1. LACOSAMIDE. [Suspect]
     Active Substance: LACOSAMIDE
     Indication: SEIZURE
     Dosage: 100 MG, 2X/DAY (BID), TABLET
     Route: 048
     Dates: start: 201508, end: 20160524

REACTIONS (1)
  - Systolic dysfunction [Fatal]

NARRATIVE: CASE EVENT DATE: 201605
